FAERS Safety Report 14122441 (Version 2)
Quarter: 2017Q4

REPORT INFORMATION
  Report Type: Spontaneous
  Country: JP (occurrence: JP)
  Receive Date: 20171024
  Receipt Date: 20171025
  Transmission Date: 20180321
  Serious: Yes (Other)
  Sender: FDA-Public Use
  Company Number: PHJP2017JP031560

PATIENT
  Age: 66 Year
  Sex: Female

DRUGS (5)
  1. ERIBULIN MESILATE [Concomitant]
     Active Substance: ERIBULIN
     Dosage: UNK, 21 ADMINISTRATIONS
     Route: 065
  2. ZOLEDRONATE [Suspect]
     Active Substance: ZOLEDRONIC ACID
     Indication: METASTASES TO BONE
     Dosage: UNK, 55 ADMINISTRATIONS
     Route: 065
  3. ERIBULIN MESILATE [Concomitant]
     Active Substance: ERIBULIN
     Indication: BREAST CANCER STAGE III
     Dosage: UNK
     Route: 065
  4. ZOLEDRONATE [Suspect]
     Active Substance: ZOLEDRONIC ACID
     Dosage: UNK, 21 ADMINISTRATIONS
     Route: 065
  5. PACLITAXEL. [Suspect]
     Active Substance: PACLITAXEL
     Indication: BREAST CANCER STAGE III
     Dosage: UNK, WEEKLY, 46 ADMINISTRATIONS IN TOTAL
     Route: 065

REACTIONS (4)
  - Metastases to liver [Unknown]
  - Malignant neoplasm progression [Unknown]
  - Femur fracture [Unknown]
  - Metastases to lung [Unknown]
